FAERS Safety Report 14833885 (Version 1)
Quarter: 2018Q2

REPORT INFORMATION
  Report Type: Spontaneous
  Country: US (occurrence: US)
  Receive Date: 20180501
  Receipt Date: 20180501
  Transmission Date: 20180711
  Serious: No
  Sender: FDA-Public Use
  Company Number: US-ROCHE-1927638

PATIENT
  Age: 50 Year
  Sex: Female

DRUGS (6)
  1. TAXOL [Concomitant]
     Active Substance: PACLITAXEL
     Indication: NON-SMALL CELL LUNG CANCER
     Dosage: 200/M2
     Route: 065
     Dates: start: 201402, end: 201405
  2. AVASTIN [Suspect]
     Active Substance: BEVACIZUMAB
     Route: 065
     Dates: start: 20140612, end: 20141204
  3. NEULASTA [Concomitant]
     Active Substance: PEGFILGRASTIM
  4. CARBOPLATIN. [Concomitant]
     Active Substance: CARBOPLATIN
     Indication: NON-SMALL CELL LUNG CANCER
     Route: 065
     Dates: start: 201402, end: 201405
  5. CRIZOTINIB [Concomitant]
     Active Substance: CRIZOTINIB
     Route: 065
     Dates: start: 20150917
  6. AVASTIN [Suspect]
     Active Substance: BEVACIZUMAB
     Indication: NON-SMALL CELL LUNG CANCER
     Dosage: 5 CYCLES
     Route: 065
     Dates: start: 20140217, end: 20140512

REACTIONS (2)
  - Mediastinal mass [Unknown]
  - Pulmonary mass [Unknown]

NARRATIVE: CASE EVENT DATE: 20140930
